FAERS Safety Report 7880093-X (Version None)
Quarter: 2011Q4

REPORT INFORMATION
  Report Type: 
  Country: None (occurrence: None)
  Receive Date: 20111101
  Receipt Date: 20111031
  Transmission Date: 20120403
  Serious: Yes (Other)
  Sender: FDA-Public Use
  Company Number: PL-BAYER-2011-099013

PATIENT
  Age: 35 Year
  Sex: Female
  Weight: 79 kg

DRUGS (2)
  1. VISANNE 2MG [Suspect]
     Indication: ENDOMETRIOSIS
     Dosage: UNK
     Route: 048
     Dates: start: 20100101, end: 20110101
  2. MIRENA [Suspect]
     Indication: ADENOMYOSIS
     Dosage: UNK
     Route: 015
     Dates: start: 20110811, end: 20110909

REACTIONS (4)
  - PROCEDURAL PAIN [None]
  - POST PROCEDURAL HAEMORRHAGE [None]
  - ULCER [None]
  - DRUG INTOLERANCE [None]
